FAERS Safety Report 8545553 (Version 4)
Quarter: 2012Q4

REPORT INFORMATION
  Report Type: 
  Country: JP (occurrence: JP)
  Receive Date: 20120503
  Receipt Date: 20121123
  Transmission Date: 20130627
  Serious: Yes (Other)
  Sender: FDA-Public Use
  Company Number: JP-JNJFOC-20110805995

PATIENT
  Age: 49 Year
  Sex: Female
  Weight: 49 kg

DRUGS (15)
  1. INTELENCE [Suspect]
     Indication: HIV INFECTION
     Route: 048
     Dates: start: 20110613
  2. PREDNISOLONE [Suspect]
     Indication: RASH
     Route: 048
     Dates: start: 20110801, end: 20110811
  3. PREDNISOLONE [Suspect]
     Indication: RASH
     Route: 048
     Dates: start: 20110811, end: 20110822
  4. PREDNISOLONE [Suspect]
     Indication: RASH
     Route: 048
     Dates: start: 20110719, end: 20110801
  5. PREDNISOLONE [Suspect]
     Indication: RASH
     Route: 048
     Dates: start: 20110716, end: 20110719
  6. PREDNISOLONE [Suspect]
     Indication: RASH
     Route: 048
     Dates: start: 20110708, end: 20110712
  7. PREDNISOLONE [Suspect]
     Indication: RASH
     Dosage: at 13.31
     Route: 048
     Dates: start: 20110627, end: 20110708
  8. PREDNISOLONE [Suspect]
     Indication: RASH
     Dosage: At 8.43
     Route: 048
     Dates: start: 20110624, end: 20110627
  9. PREDNISOLONE [Suspect]
     Indication: RASH
     Route: 048
     Dates: start: 20110712, end: 20110716
  10. ISENTRESS [Concomitant]
     Indication: HIV INFECTION
     Route: 048
     Dates: start: 20110613
  11. TRUVADA [Concomitant]
     Indication: HIV INFECTION
     Route: 048
     Dates: start: 20110613
  12. TRUVADA [Concomitant]
     Indication: HIV INFECTION
     Route: 048
     Dates: start: 200704, end: 20110612
  13. LOXONIN [Concomitant]
     Indication: BACK PAIN
     Route: 048
     Dates: start: 20110801, end: 20110904
  14. MYONAL [Concomitant]
     Indication: BACK PAIN
     Route: 048
     Dates: start: 20110801, end: 20110904
  15. URSO [Concomitant]
     Indication: HEPATIC FUNCTION ABNORMAL
     Route: 048
     Dates: start: 20120319

REACTIONS (6)
  - Gastric ulcer [Not Recovered/Not Resolved]
  - Liver disorder [Not Recovered/Not Resolved]
  - Rash [Recovered/Resolved]
  - Back pain [Not Recovered/Not Resolved]
  - Oral candidiasis [Not Recovered/Not Resolved]
  - Insomnia [Not Recovered/Not Resolved]
